FAERS Safety Report 24047619 (Version 1)
Quarter: 2024Q3

REPORT INFORMATION
  Report Type: Spontaneous
  Country: CH (occurrence: CH)
  Receive Date: 20240703
  Receipt Date: 20240703
  Transmission Date: 20241016
  Serious: Yes (Hospitalization, Other)
  Sender: PFIZER
  Company Number: None

PATIENT
  Age: 77 Year
  Sex: Female

DRUGS (8)
  1. LINEZOLID [Suspect]
     Active Substance: LINEZOLID
     Indication: Intervertebral discitis
     Dosage: 600 MG, 2X/DAY
     Route: 048
     Dates: start: 20240411, end: 20240429
  2. KENACORT-A [TRIAMCINOLONE ACETONIDE DIPOTASSIUM PHOSPHATE] [Concomitant]
     Dosage: ADHESIVE PASTE 0.1% IF REQUIRED IN THE MOUTH AREA
  3. PANTOZOL [Concomitant]
     Active Substance: PANTOPRAZOLE SODIUM
     Dosage: 40 MG, AS NEEDED
  4. ACYCLOVIR [Concomitant]
     Active Substance: ACYCLOVIR
     Dosage: 500 MG, 1X/DAY; 1-0-0
  5. ASPIRIN [Concomitant]
     Active Substance: ASPIRIN
     Dosage: 100 MG, 1X/DAY; 1-0-0
  6. DAFALGAN [Concomitant]
     Active Substance: ACETAMINOPHEN
     Dosage: 500 MG, 2X/DAY; 1-0-1
  7. TORSEMIDE [Concomitant]
     Active Substance: TORSEMIDE
     Dosage: 10 MG, 1X/DAY; 1-0-0
  8. VITAMIN D3 [Concomitant]
     Active Substance: CHOLECALCIFEROL
     Dosage: 2 ML, WEEKLY

REACTIONS (10)
  - Vertigo [Unknown]
  - Dizziness [Unknown]
  - Disease recurrence [Unknown]
  - Vision blurred [Unknown]
  - Iron deficiency [Unknown]
  - Anaemia [Recovering/Resolving]
  - Thrombocytopenia [Recovered/Resolved]
  - Haematotoxicity [Unknown]
  - Bicytopenia [Unknown]
  - Off label use [Unknown]

NARRATIVE: CASE EVENT DATE: 20240411
